FAERS Safety Report 21770354 (Version 1)
Quarter: 2022Q4

REPORT INFORMATION
  Report Type: Spontaneous
  Country: NL (occurrence: NL)
  Receive Date: 20221223
  Receipt Date: 20221223
  Transmission Date: 20230112
  Serious: Yes (Other)
  Sender: FDA-Public Use
  Company Number: NL-002147023-NVSC2022NL281436

PATIENT
  Sex: Male

DRUGS (1)
  1. TEMOZOLOMIDE [Suspect]
     Active Substance: TEMOZOLOMIDE
     Indication: Anaplastic astrocytoma
     Dosage: UNK (150-200 MG/M2)
     Route: 065
     Dates: start: 202007, end: 202009

REACTIONS (5)
  - Hemiplegia [Unknown]
  - Neoplasm recurrence [Unknown]
  - Tumour pseudoprogression [Unknown]
  - Epilepsy [Unknown]
  - Anaplastic astrocytoma [Unknown]
